FAERS Safety Report 5233701-6 (Version None)
Quarter: 2007Q1

REPORT INFORMATION
  Report Type: 
  Country: None (occurrence: None)
  Receive Date: 20070208
  Receipt Date: 20070207
  Transmission Date: 20070707
  Serious: Yes (Other)
  Sender: FDA-Public Use
  Company Number: BR-GLAXOSMITHKLINE-A0638646A

PATIENT
  Age: 21 Year
  Sex: Female
  Weight: 120 kg

DRUGS (2)
  1. WELLBUTRIN [Suspect]
     Indication: DEPRESSION
     Dosage: 150MG PER DAY
     Route: 048
     Dates: start: 20070202
  2. LEVONORGESTREL AND ETHINYL ESTRADIOL [Concomitant]
     Dates: start: 20050101

REACTIONS (3)
  - APNOEA [None]
  - CHEST DISCOMFORT [None]
  - HEADACHE [None]
